FAERS Safety Report 16681132 (Version 1)
Quarter: 2019Q3

REPORT INFORMATION
  Report Type: Spontaneous
  Country: US (occurrence: US)
  Receive Date: 20190808
  Receipt Date: 20190808
  Transmission Date: 20191004
  Serious: No
  Sender: FDA-Public Use
  Company Number: US-009507513-1908USA003036

PATIENT
  Age: 58 Year
  Sex: Female

DRUGS (2)
  1. LEVODOPA [Suspect]
     Active Substance: LEVODOPA
     Indication: PARKINSON^S DISEASE
     Dosage: 84 MILLIGRAM
     Dates: start: 201906
  2. SINEMET [Suspect]
     Active Substance: CARBIDOPA\LEVODOPA
     Route: 048

REACTIONS (2)
  - Feeling abnormal [Unknown]
  - Insomnia [Unknown]

NARRATIVE: CASE EVENT DATE: 201907
